FAERS Safety Report 13589245 (Version 1)
Quarter: 2017Q2

REPORT INFORMATION
  Report Type: Spontaneous
  Country: US (occurrence: US)
  Receive Date: 20170526
  Receipt Date: 20170526
  Transmission Date: 20170830
  Serious: Yes (Hospitalization)
  Sender: FDA-Public Use
  Company Number: None

PATIENT
  Age: 17 Year
  Sex: Female

DRUGS (8)
  1. PROAIR HFA [Concomitant]
     Active Substance: ALBUTEROL SULFATE
  2. CEREZYME [Concomitant]
     Active Substance: IMIGLUCERASE
  3. WOMENS D3 [Concomitant]
  4. CREON [Concomitant]
     Active Substance: PANCRELIPASE AMYLASE\PANCRELIPASE LIPASE\PANCRELIPASE PROTEASE
  5. BETHKIS [Suspect]
     Active Substance: TOBRAMYCIN
     Indication: CYSTIC FIBROSIS
     Dosage: DOSE - 300MG/4ML
     Route: 055
  6. PULMOZYME [Suspect]
     Active Substance: DORNASE ALFA
     Dates: start: 20131031
  7. LANTUS [Concomitant]
     Active Substance: INSULIN GLARGINE
  8. CAYSTON [Concomitant]
     Active Substance: AZTREONAM

REACTIONS (2)
  - Pulmonary function test decreased [None]
  - Condition aggravated [None]

NARRATIVE: CASE EVENT DATE: 2017
